FAERS Safety Report 5350135-4 (Version None)
Quarter: 2007Q2

REPORT INFORMATION
  Report Type: 
  Country: None (occurrence: None)
  Receive Date: 20070607
  Receipt Date: 20070604
  Transmission Date: 20071010
  Serious: Yes (Disabling)
  Sender: FDA-Public Use
  Company Number: GB-MERCK-0706GBR00017

PATIENT
  Age: 81 Year
  Sex: Female
  Weight: 67 kg

DRUGS (7)
  1. ZOCOR [Suspect]
     Indication: BLOOD CHOLESTEROL INCREASED
     Route: 048
     Dates: start: 20060216, end: 20070116
  2. BECLOMETHASONE DIPROPIONATE [Concomitant]
     Dates: start: 19960101
  3. BENDROFLUMETHIAZIDE [Concomitant]
     Route: 048
     Dates: start: 20020101
  4. CANDESARTAN CILEXETIL [Concomitant]
     Route: 048
     Dates: start: 20040101
  5. LACTULOSE [Concomitant]
     Route: 065
     Dates: start: 20030101
  6. MOVELAT [Concomitant]
     Route: 065
     Dates: start: 20020101
  7. ALBUTEROL [Concomitant]
     Dates: start: 19960101

REACTIONS (1)
  - TENDONITIS [None]
